FAERS Safety Report 8520610-X (Version None)
Quarter: 2012Q3

REPORT INFORMATION
  Report Type: 
  Country: None (occurrence: None)
  Receive Date: 20120713
  Receipt Date: 20120713
  Transmission Date: 20120928
  Serious: Yes (Other)
  Sender: FDA-Public Use
  Company Number: None

PATIENT
  Sex: Male

DRUGS (1)
  1. SEROQUEL [Suspect]
     Dosage: QHS

REACTIONS (3)
  - PRODUCT SUBSTITUTION ISSUE [None]
  - ANGER [None]
  - ABNORMAL BEHAVIOUR [None]
